FAERS Safety Report 7804235-7 (Version None)
Quarter: 2011Q4

REPORT INFORMATION
  Report Type: 
  Country: None (occurrence: None)
  Receive Date: 20111010
  Receipt Date: 20111005
  Transmission Date: 20120403
  Serious: Yes (Disabling)
  Sender: FDA-Public Use
  Company Number: DE-SANOFI-AVENTIS-2011SA049611

PATIENT
  Age: 66 Year
  Sex: Male
  Weight: 87 kg

DRUGS (7)
  1. MARCUMAR [Concomitant]
     Route: 048
     Dates: start: 20110321
  2. MULTAQ [Suspect]
     Indication: ATRIAL FIBRILLATION
     Route: 048
     Dates: start: 20110321
  3. MULTAQ [Interacting]
     Route: 048
     Dates: start: 20110321
  4. MULTAQ [Interacting]
     Route: 048
     Dates: start: 20110321
  5. ACE INHIBITOR NOS [Concomitant]
     Route: 048
  6. ATORVASTATIN [Interacting]
     Route: 048
     Dates: start: 20100101, end: 20110101
  7. CARVEDILOL [Concomitant]
     Indication: HYPERTENSION
     Route: 048

REACTIONS (5)
  - MUSCULAR WEAKNESS [None]
  - MYALGIA [None]
  - DRUG INTERACTION [None]
  - MOBILITY DECREASED [None]
  - EXERCISE TOLERANCE DECREASED [None]
